FAERS Safety Report 17372464 (Version 4)
Quarter: 2020Q1

REPORT INFORMATION
  Report Type: Report from Study
  Country: None (occurrence: CA)
  Receive Date: 20200205
  Receipt Date: 20200226
  Transmission Date: 20200409
  Serious: Yes (Other)
  Sender: FDA-Public Use
  Company Number: CA-ABBVIE-20K-028-3262733-00

PATIENT
  Age: 41 Year
  Sex: Male

DRUGS (1)
  1. HUMIRA [Suspect]
     Active Substance: ADALIMUMAB
     Indication: PSORIATIC ARTHROPATHY
     Route: 058
     Dates: start: 20200131

REACTIONS (20)
  - Blood pressure decreased [Recovered/Resolved]
  - Adverse drug reaction [Recovered/Resolved]
  - Abdominal discomfort [Recovered/Resolved]
  - Eye movement disorder [Unknown]
  - Headache [Not Recovered/Not Resolved]
  - Feeling abnormal [Unknown]
  - Syncope [Recovered/Resolved]
  - Hyperhidrosis [Recovered/Resolved]
  - Presyncope [Unknown]
  - Loss of consciousness [Recovered/Resolved]
  - Injection site pain [Unknown]
  - Anxiety [Unknown]
  - Heart rate decreased [Recovered/Resolved]
  - Abdominal pain upper [Not Recovered/Not Resolved]
  - Seizure [Unknown]
  - Arthralgia [Unknown]
  - Fear of injection [Unknown]
  - Sensory disturbance [Unknown]
  - Musculoskeletal stiffness [Recovered/Resolved]
  - Feeling hot [Unknown]

NARRATIVE: CASE EVENT DATE: 2020
